FAERS Safety Report 9242971 (Version 1)
Quarter: 2013Q2

REPORT INFORMATION
  Report Type: Spontaneous
  Country: US (occurrence: US)
  Receive Date: 20130420
  Receipt Date: 20130420
  Transmission Date: 20140414
  Serious: No
  Sender: FDA-Public Use
  Company Number: US-ASTRAZENECA-2013SE19472

PATIENT
  Sex: Male

DRUGS (3)
  1. SYMBICORT [Suspect]
     Dosage: 160/4.5, TWO PUFFS TWO TIMES A DAY
     Route: 055
  2. SYMBICORT [Suspect]
     Dosage: 160/4.5, TWO PUFFS THREE TIMES A DAY
     Route: 055
  3. SYMBICORT [Suspect]
     Dosage: 160/4.5, TWO PUFFS IN MORNING ONE PUFF IN THE AFTERNOON AND THEN ONE PUFF AT NIGHT
     Route: 055

REACTIONS (3)
  - Adverse event [Unknown]
  - Cough [Unknown]
  - Off label use [Unknown]
